FAERS Safety Report 17755074 (Version 1)
Quarter: 2020Q2

REPORT INFORMATION
  Report Type: Spontaneous
  Country: US (occurrence: US)
  Receive Date: 20200506
  Receipt Date: 20200506
  Transmission Date: 20200714
  Serious: Yes (Hospitalization, Other)
  Sender: FDA-Public Use
  Company Number: None

PATIENT
  Age: 75 Year
  Sex: Female
  Weight: 77.56 kg

DRUGS (11)
  1. MULTI COPIO [Concomitant]
  2. HYDROCHOROTHYAZINE [Concomitant]
  3. CODVET [Concomitant]
  4. MICARDIS [Concomitant]
     Active Substance: TELMISARTAN
  5. ASPIRIN. [Concomitant]
     Active Substance: ASPIRIN
  6. LIPITOR [Concomitant]
     Active Substance: ATORVASTATIN CALCIUM
  7. PROTONIX [Concomitant]
     Active Substance: PANTOPRAZOLE SODIUM
  8. VITAMIN B COMPLEX [Concomitant]
     Active Substance: CYANOCOBALAMIN\DEXPANTHENOL\NIACINAMIDE\PYRIDOXINE HYDROCHLORIDE\RIBOFLAVIN 5^-PHOSPHATE SODIUM\THIAMINE HYDROCHLORIDE\VITAMIN B COMPLEX
  9. GABAPENTIN. [Suspect]
     Active Substance: GABAPENTIN
     Indication: PAIN MANAGEMENT
     Dosage: ?          QUANTITY:1 GEL CAP  ;OTHER FREQUENCY:YELLOWISH-BROWN ;?
     Dates: start: 20200211, end: 20200211
  10. ESTRADIOL. [Concomitant]
     Active Substance: ESTRADIOL
  11. VITAMIN D3 [Concomitant]
     Active Substance: CHOLECALCIFEROL

REACTIONS (10)
  - Throat tightness [None]
  - Feeling abnormal [None]
  - Tremor [None]
  - Urinary incontinence [None]
  - Tongue erythema [None]
  - Tongue exfoliation [None]
  - Ataxia [None]
  - Muscle spasms [None]
  - Seizure [None]
  - Swollen tongue [None]

NARRATIVE: CASE EVENT DATE: 20200211
